FAERS Safety Report 6219711-0 (Version None)
Quarter: 2009Q2

REPORT INFORMATION
  Report Type: 
  Country: None (occurrence: None)
  Receive Date: 20090609
  Receipt Date: 20090529
  Transmission Date: 20091009
  Serious: Yes (Hospitalization)
  Sender: FDA-Public Use
  Company Number: US-AMGEN-US349288

PATIENT
  Age: 42 Year
  Sex: Male

DRUGS (3)
  1. NEUPOGEN [Suspect]
     Indication: PERIPHERAL BLOOD STEM CELL APHERESIS
     Route: 058
  2. AMLODIPINE BESILATE [Concomitant]
     Route: 048
  3. ACID-CITRATE-DEXTROSE SOLUTION [Concomitant]
     Route: 042

REACTIONS (4)
  - CONGENITAL CEREBROVASCULAR ANOMALY [None]
  - SUBDURAL HAEMORRHAGE [None]
  - THROMBOCYTOPENIA [None]
  - WHITE BLOOD CELL COUNT INCREASED [None]
